FAERS Safety Report 9477214 (Version 1)
Quarter: 2013Q3

REPORT INFORMATION
  Report Type: Spontaneous
  Country: US (occurrence: US)
  Receive Date: 20130826
  Receipt Date: 20130826
  Transmission Date: 20140515
  Serious: Yes (Other)
  Sender: FDA-Public Use
  Company Number: US-TEVA-427498USA

PATIENT
  Sex: Female

DRUGS (2)
  1. COPAXONE [Suspect]
     Indication: MULTIPLE SCLEROSIS
  2. AMPYRA [Concomitant]

REACTIONS (3)
  - Multiple sclerosis [Unknown]
  - Antibody test positive [Unknown]
  - Dysgraphia [Unknown]
